FAERS Safety Report 9807936 (Version 2)
Quarter: 2014Q1

REPORT INFORMATION
  Report Type: Spontaneous
  Country: IT (occurrence: IT)
  Receive Date: 20140110
  Receipt Date: 20140121
  Transmission Date: 20141002
  Serious: Yes (Hospitalization)
  Sender: FDA-Public Use
  Company Number: IT-PFIZER INC-2014005984

PATIENT
  Age: 60 Year
  Sex: Female
  Weight: 65 kg

DRUGS (3)
  1. ATENOLOL [Suspect]
     Dosage: 100 MG, DAILY
     Route: 048
     Dates: start: 20130101, end: 20131113
  2. ETILTOX [Interacting]
     Indication: ALCOHOLISM
     Dosage: 200 MG, DAILY
     Route: 048
     Dates: start: 20130801
  3. DELORAZEPAM [Concomitant]
     Dosage: UNK
     Route: 048
     Dates: start: 2012

REACTIONS (6)
  - Drug interaction [Unknown]
  - Hypothermia [Recovered/Resolved]
  - Blood alcohol increased [Unknown]
  - Blood creatinine increased [Recovered/Resolved]
  - Hypotension [Recovered/Resolved]
  - Syncope [Recovered/Resolved]
